FAERS Safety Report 9380596 (Version 2)
Quarter: 2014Q1

REPORT INFORMATION
  Report Type: Spontaneous
  Country: US (occurrence: None)
  Receive Date: 20130628
  Receipt Date: 20140212
  Transmission Date: 20141002
  Serious: Yes (Hospitalization)
  Sender: FDA-Public Use
  Company Number: 2013AP006154

PATIENT
  Age: 55 Year
  Sex: Male
  Weight: 144 kg

DRUGS (12)
  1. FERRIPROX [Suspect]
     Indication: HEREDITARY HAEMOCHROMATOSIS
     Route: 048
     Dates: start: 20111223, end: 201303
  2. OMEPRAZOLE [Concomitant]
  3. VICODIN [Concomitant]
  4. FLUTICASONE [Concomitant]
  5. CITALOPRAM [Concomitant]
  6. PRAMIPEXOLE [Concomitant]
  7. ALLOPURINOL [Concomitant]
  8. CARVEDILOL [Concomitant]
  9. SPIRIVA [Concomitant]
  10. FOLIC ACID [Concomitant]
  11. PROVENTIL [Concomitant]
  12. ADVAIR [Concomitant]

REACTIONS (3)
  - Fall [None]
  - Hypotension [None]
  - Blood iron decreased [None]
